FAERS Safety Report 15794328 (Version 1)
Quarter: 2019Q1

REPORT INFORMATION
  Report Type: Spontaneous
  Country: US (occurrence: US)
  Receive Date: 20190106
  Receipt Date: 20190106
  Transmission Date: 20190417
  Serious: Yes (Other)
  Sender: FDA-Public Use
  Company Number: None

PATIENT
  Age: 48 Year
  Sex: Female
  Weight: 64.35 kg

DRUGS (10)
  1. WOMEN^S GUMMIES [Concomitant]
  2. VITAMIN K [Concomitant]
     Active Substance: PHYTONADIONE
  3. LYSINE [Concomitant]
     Active Substance: LYSINE
  4. SPIRONOLACTONE 25MG TABLET [Suspect]
     Active Substance: SPIRONOLACTONE
     Indication: SKIN HYPERPIGMENTATION
     Dosage: ?          QUANTITY:1 TABLET(S);?
     Route: 048
     Dates: start: 20181214, end: 20190101
  5. ZOCOR [Concomitant]
     Active Substance: SIMVASTATIN
  6. TURMERIC [Concomitant]
     Active Substance: HERBALS\TURMERIC
  7. NATURE THROID 1.5GRAIN [Concomitant]
  8. PORTIA [Concomitant]
     Active Substance: ETHINYL ESTRADIOL\LEVONORGESTREL
  9. VITAMIN B COMPLEX [Concomitant]
     Active Substance: CYANOCOBALAMIN\DEXPANTHENOL\NIACINAMIDE\PYRIDOXINE HYDROCHLORIDE\RIBOFLAVIN 5^-PHOSPHATE SODIUM\THIAMINE HYDROCHLORIDE\VITAMIN B COMPLEX
  10. VITAMIN K [Concomitant]
     Active Substance: PHYTONADIONE

REACTIONS (4)
  - Urticaria [None]
  - Swelling face [None]
  - Rash generalised [None]
  - Peripheral swelling [None]

NARRATIVE: CASE EVENT DATE: 20190102
